FAERS Safety Report 9728756 (Version 1)
Quarter: 2013Q4

REPORT INFORMATION
  Report Type: Spontaneous
  Country: US (occurrence: US)
  Receive Date: 20131204
  Receipt Date: 20131204
  Transmission Date: 20140711
  Serious: Yes (Death, Other)
  Sender: FDA-Public Use
  Company Number: US-SA-2013SA125744

PATIENT
  Sex: Male

DRUGS (2)
  1. LOVENOX [Suspect]
     Route: 065
  2. COUMADIN [Suspect]
     Route: 065

REACTIONS (4)
  - Myocardial infarction [Fatal]
  - Cardiac failure congestive [Fatal]
  - Transient ischaemic attack [Unknown]
  - Back disorder [Unknown]
